FAERS Safety Report 9958639 (Version 1)
Quarter: 2014Q1

REPORT INFORMATION
  Report Type: Spontaneous
  Country: TR (occurrence: None)
  Receive Date: 20140227
  Receipt Date: 20140227
  Transmission Date: 20141002
  Serious: Yes (Disabling, Other)
  Sender: FDA-Public Use
  Company Number: 2014P1001620

PATIENT
  Age: 80 Year
  Sex: Male

DRUGS (2)
  1. CEFUROXIME [Suspect]
     Indication: VITRECTOMY
     Dosage: 70 MG; X1;IO
     Route: 031
  2. CEFUROXIME [Suspect]
     Indication: INTRAOCULAR LENS IMPLANT
     Dosage: 70 MG; X1;IO
     Route: 031

REACTIONS (5)
  - Retinal haemorrhage [None]
  - Optic atrophy [None]
  - Retinal infarction [None]
  - Ocular toxicity [None]
  - Accidental overdose [None]
